FAERS Safety Report 4595617-8 (Version None)
Quarter: 2005Q1

REPORT INFORMATION
  Report Type: 
  Country: None (occurrence: None)
  Receive Date: 20050224
  Receipt Date: 20050209
  Transmission Date: 20050727
  Serious: Yes (Hospitalization)
  Sender: FDA-Public Use
  Company Number: WAES 0410USA00136

PATIENT
  Age: 77 Year
  Sex: Male

DRUGS (3)
  1. COZAAR [Suspect]
     Indication: HYPERTENSION
     Dosage: 50 MG/DAILY
     Route: 048
     Dates: start: 20011112, end: 20030721
  2. COZAAR [Suspect]
     Indication: HYPERTENSION
     Dosage: 50 MG/DAILY
     Route: 048
     Dates: start: 20030911, end: 20040528
  3. SYMMETREL [Concomitant]

REACTIONS (4)
  - CEREBRAL INFARCTION [None]
  - DELIRIUM [None]
  - DEMENTIA [None]
  - SPOUSAL ABUSE [None]
